FAERS Safety Report 6380947-X (Version None)
Quarter: 2009Q3

REPORT INFORMATION
  Report Type: 
  Country: None (occurrence: None)
  Receive Date: 20090929
  Receipt Date: 20090918
  Transmission Date: 20100115
  Serious: Yes (Other)
  Sender: FDA-Public Use
  Company Number: US-TYCO HEALTHCARE/MALLINCKRODT-T200901774

PATIENT
  Age: 7 Year
  Sex: Female

DRUGS (1)
  1. METHYLIN ER [Suspect]
     Dosage: 10 MG, QD
     Dates: start: 20090101, end: 20090915

REACTIONS (1)
  - CONVULSION [None]
